FAERS Safety Report 19682310 (Version 1)
Quarter: 2021Q3

REPORT INFORMATION
  Report Type: Spontaneous
  Country: IT (occurrence: IT)
  Receive Date: 20210810
  Receipt Date: 20210810
  Transmission Date: 20211014
  Serious: Yes (Hospitalization)
  Sender: FDA-Public Use
  Company Number: IT-ROCHE-2888339

PATIENT
  Age: 33 Year
  Sex: Female

DRUGS (5)
  1. ATARAX [Concomitant]
     Active Substance: HYDROXYZINE HYDROCHLORIDE
  2. OCREVUS [Suspect]
     Active Substance: OCRELIZUMAB
     Indication: MULTIPLE SCLEROSIS
     Route: 042
     Dates: start: 20210722, end: 20210722
  3. TACHIPIRINA [Concomitant]
     Active Substance: ACETAMINOPHEN
  4. URBASON [Concomitant]
     Active Substance: METHYLPREDNISOLONE
  5. SOLU?MEDROL [Concomitant]
     Active Substance: METHYLPREDNISOLONE SODIUM SUCCINATE
     Dosage: 125 MG / 2 ML

REACTIONS (1)
  - Butterfly rash [Recovered/Resolved]

NARRATIVE: CASE EVENT DATE: 20210722
